FAERS Safety Report 16958722 (Version 1)
Quarter: 2019Q4

REPORT INFORMATION
  Report Type: Spontaneous
  Country: FR (occurrence: FR)
  Receive Date: 20191024
  Receipt Date: 20191024
  Transmission Date: 20200122
  Serious: Yes (Other)
  Sender: FDA-Public Use
  Company Number: FR-GLAXOSMITHKLINE-FR2019192558

PATIENT
  Age: 82 Year
  Sex: Male

DRUGS (3)
  1. LASILIX [Suspect]
     Active Substance: FUROSEMIDE
     Indication: ACUTE RESPIRATORY FAILURE
     Dosage: 250 MG, UNK
     Route: 048
     Dates: start: 20190922
  2. DIAMOX SEQUELS [Suspect]
     Active Substance: ACETAZOLAMIDE
     Indication: ACUTE RESPIRATORY FAILURE
     Dosage: 2 DF, UNK
     Route: 048
     Dates: start: 20191001, end: 20191008
  3. SALBUMOL [Suspect]
     Active Substance: ALBUTEROL SULFATE
     Indication: ACUTE RESPIRATORY FAILURE
     Dosage: 10 MG, UNK
     Route: 042
     Dates: start: 20190922

REACTIONS (2)
  - Rash pruritic [Recovering/Resolving]
  - Rash erythematous [Recovering/Resolving]

NARRATIVE: CASE EVENT DATE: 20191004
